FAERS Safety Report 9148759 (Version 1)
Quarter: 2013Q1

REPORT INFORMATION
  Report Type: Spontaneous
  Country: AU (occurrence: AU)
  Receive Date: 20130308
  Receipt Date: 20130308
  Transmission Date: 20140127
  Serious: Yes (Other)
  Sender: FDA-Public Use
  Company Number: AU-JNJFOC-20130303493

PATIENT
  Sex: Female

DRUGS (2)
  1. REGAINE [Suspect]
     Route: 061
  2. REGAINE [Suspect]
     Indication: ALOPECIA
     Route: 061

REACTIONS (4)
  - Hypertension [Unknown]
  - Eye swelling [Unknown]
  - Abdominal distension [Unknown]
  - Wrong drug administered [Unknown]
